FAERS Safety Report 21793135 (Version 1)
Quarter: 2022Q4

REPORT INFORMATION
  Report Type: Report from Study
  Country: CA (occurrence: CA)
  Receive Date: 20221229
  Receipt Date: 20221229
  Transmission Date: 20230112
  Serious: Yes (Other)
  Sender: FDA-Public Use
  Company Number: CA-002147023-NVSC2022CA296119

PATIENT
  Age: 56 Year
  Sex: Male

DRUGS (1)
  1. ERELZI [Suspect]
     Active Substance: ETANERCEPT-SZZS
     Indication: Psoriatic arthropathy
     Dosage: 50 MG
     Route: 058
     Dates: start: 20221108

REACTIONS (6)
  - Ankylosing spondylitis [Unknown]
  - Mental impairment [Unknown]
  - Fall [Unknown]
  - Gait disturbance [Unknown]
  - General physical health deterioration [Unknown]
  - Drug ineffective [Unknown]
